FAERS Safety Report 11054456 (Version 1)
Quarter: 2015Q2

REPORT INFORMATION
  Report Type: Spontaneous
  Country: US (occurrence: US)
  Receive Date: 20150422
  Receipt Date: 20150422
  Transmission Date: 20150821
  Serious: No
  Sender: FDA-Public Use
  Company Number: US-BIOGENIDEC-2015BI049947

PATIENT
  Age: 39 Year
  Sex: Male

DRUGS (2)
  1. TECFIDERA [Suspect]
     Active Substance: DIMETHYL FUMARATE
     Indication: MULTIPLE SCLEROSIS
     Route: 048
     Dates: start: 201405
  2. AMPYRA [Concomitant]
     Active Substance: DALFAMPRIDINE
     Route: 048
     Dates: start: 201405, end: 201502

REACTIONS (2)
  - Diarrhoea [Not Recovered/Not Resolved]
  - Weight fluctuation [Recovered/Resolved]

NARRATIVE: CASE EVENT DATE: 2014
